FAERS Safety Report 16228999 (Version 1)
Quarter: 2019Q2

REPORT INFORMATION
  Report Type: Other
  Country: DK (occurrence: DK)
  Receive Date: 20190423
  Receipt Date: 20190423
  Transmission Date: 20190711
  Serious: Yes (Hospitalization)
  Sender: FDA-Public Use
  Company Number: DK-STRIDES ARCOLAB LIMITED-2019SP003421

PATIENT
  Age: 73 Year
  Sex: Male

DRUGS (3)
  1. VANCOMYCIN [Suspect]
     Active Substance: VANCOMYCIN
     Indication: PERITONITIS
     Dosage: 1 G, UNKNOWN
     Route: 033
     Dates: start: 20180528
  2. BURINEX [Suspect]
     Active Substance: BUMETANIDE
     Indication: RENAL FAILURE
     Dosage: 5 MG PER DAY
     Route: 048
     Dates: start: 20180831, end: 20181213
  3. CIPROFLOXACIN. [Suspect]
     Active Substance: CIPROFLOXACIN
     Indication: DIALYSIS RELATED COMPLICATION
     Dosage: 500 MG PER DAY
     Route: 048
     Dates: start: 20180910, end: 20190319

REACTIONS (9)
  - Headache [Unknown]
  - Tinnitus [Unknown]
  - Vomiting [Unknown]
  - Visual impairment [Unknown]
  - Malaise [Unknown]
  - Fatigue [Unknown]
  - Disturbance in attention [Unknown]
  - Gait disturbance [Unknown]
  - Dizziness [Unknown]

NARRATIVE: CASE EVENT DATE: 201811
